FAERS Safety Report 23133734 (Version 1)
Quarter: 2023Q4

REPORT INFORMATION
  Report Type: Spontaneous
  Country: SI (occurrence: SI)
  Receive Date: 20231101
  Receipt Date: 20231101
  Transmission Date: 20240109
  Serious: Yes (Other)
  Sender: FDA-Public Use
  Company Number: None

PATIENT
  Age: 69 Year
  Sex: Female

DRUGS (21)
  1. OLANZAPINE [Suspect]
     Active Substance: OLANZAPINE
     Indication: Schizophrenia
     Dosage: DAILY DOSE: 5 MILLIGRAM
     Dates: start: 20230116
  2. OLANZAPINE [Suspect]
     Active Substance: OLANZAPINE
     Indication: Schizophrenia
     Dosage: DAILY DOSE: 20 MILLIGRAM
     Dates: end: 20230123
  3. OLANZAPINE [Suspect]
     Active Substance: OLANZAPINE
     Indication: Schizophrenia
     Dosage: DAILY DOSE: 15 MILLIGRAM
  4. QUETIAPINE [Suspect]
     Active Substance: QUETIAPINE
     Indication: Schizophrenia
     Dosage: DAILY DOSE: 50 MILLIGRAM
     Dates: start: 20230113, end: 202301
  5. QUETIAPINE [Suspect]
     Active Substance: QUETIAPINE
     Indication: Schizophrenia
     Dosage: DAILY DOSE: 25 MILLIGRAM
     Dates: start: 20230202
  6. QUETIAPINE [Suspect]
     Active Substance: QUETIAPINE
     Indication: Schizophrenia
     Dosage: DAILY DOSE: 25 MILLIGRAM
     Dates: start: 20230217
  7. QUETIAPINE [Suspect]
     Active Substance: QUETIAPINE
     Indication: Schizophrenia
     Dosage: DAILY DOSE: 100 MILLIGRAM
     Dates: end: 20230123
  8. RISPERIDONE [Suspect]
     Active Substance: RISPERIDONE
     Indication: Schizophrenia
     Dosage: DAILY DOSE: 4 MILLIGRAM
     Dates: start: 2021, end: 202212
  9. RISPERIDONE [Suspect]
     Active Substance: RISPERIDONE
     Indication: Schizophrenia
     Dates: start: 202212, end: 202212
  10. RISPERIDONE [Suspect]
     Active Substance: RISPERIDONE
     Indication: Schizophrenia
     Dosage: DAILY DOSE: 5 MILLIGRAM
     Dates: start: 202212
  11. RISPERIDONE [Suspect]
     Active Substance: RISPERIDONE
     Indication: Schizophrenia
     Dosage: DAILY DOSE: 6 MILLIGRAM
     Dates: start: 202301, end: 20230118
  12. RISPERIDONE [Suspect]
     Active Substance: RISPERIDONE
     Indication: Schizophrenia
     Dosage: DAILY DOSE: 8 MILLIGRAM
     Dates: start: 20230113, end: 202301
  13. RISPERIDONE [Suspect]
     Active Substance: RISPERIDONE
     Indication: Schizophrenia
     Dosage: DAILY DOSE: 9 MILLIGRAM
     Dates: end: 20230112
  14. RISPERIDONE [Suspect]
     Active Substance: RISPERIDONE
     Indication: Schizophrenia
     Dosage: GRADUALLY DECREASED
  15. LORAZEPAM [Suspect]
     Active Substance: LORAZEPAM
  16. BIPERIDEN [Suspect]
     Active Substance: BIPERIDEN
     Indication: Parkinsonism
     Dosage: DAILY DOSE: 3 MILLIGRAM
     Dates: start: 202301
  17. BIPERIDEN [Suspect]
     Active Substance: BIPERIDEN
     Indication: Extrapyramidal disorder
     Dosage: DAILY DOSE: 3 MILLIGRAM
     Dates: start: 202301
  18. BIPERIDEN [Suspect]
     Active Substance: BIPERIDEN
     Indication: Parkinsonism
     Dosage: BID?DAILY DOSE: 4 MILLIGRAM
     Dates: start: 20230112, end: 202301
  19. BIPERIDEN [Suspect]
     Active Substance: BIPERIDEN
     Indication: Extrapyramidal disorder
     Dosage: BID?DAILY DOSE: 4 MILLIGRAM
     Dates: start: 20230112, end: 202301
  20. SALINE [Concomitant]
     Active Substance: SODIUM CHLORIDE
     Indication: Sedation
     Dates: start: 202301
  21. SALINE [Concomitant]
     Active Substance: SODIUM CHLORIDE
     Indication: Hypovolaemia
     Dates: start: 202301

REACTIONS (5)
  - Atrial fibrillation [Recovering/Resolving]
  - Cardiac arrest [Recovered/Resolved]
  - Pulmonary embolism [Recovering/Resolving]
  - Epilepsy [Recovered/Resolved]
  - Pneumonia aspiration [Unknown]

NARRATIVE: CASE EVENT DATE: 20230101
